FAERS Safety Report 18559039 (Version 1)
Quarter: 2020Q4

REPORT INFORMATION
  Report Type: Spontaneous
  Country: US (occurrence: US)
  Receive Date: 20201126
  Receipt Date: 20201126
  Transmission Date: 20210114
  Serious: Yes (Disabling)
  Sender: FDA-Public Use
  Company Number: None

PATIENT
  Age: 45 Year
  Sex: Female
  Weight: 90 kg

DRUGS (1)
  1. UBRELVY [Suspect]
     Active Substance: UBROGEPANT
     Indication: MIGRAINE
     Dosage: ?          QUANTITY:10 TABLET(S);?
     Route: 048
     Dates: start: 20201025, end: 20201125

REACTIONS (3)
  - Therapy non-responder [None]
  - Vaginal infection [None]
  - Constipation [None]

NARRATIVE: CASE EVENT DATE: 20201125
